FAERS Safety Report 13950297 (Version 1)
Quarter: 2017Q3

REPORT INFORMATION
  Report Type: Spontaneous
  Country: TW (occurrence: TW)
  Receive Date: 20170908
  Receipt Date: 20170908
  Transmission Date: 20171128
  Serious: Yes (Other)
  Sender: FDA-Public Use
  Company Number: TW-MYLANLABS-2017M1055342

PATIENT
  Age: 11 Year
  Sex: Male

DRUGS (1)
  1. SODIUM TETRADECYL SULFATE [Suspect]
     Active Substance: SODIUM TETRADECYL SULFATE
     Indication: VASCULAR MALFORMATION
     Dosage: 3%: 2ML
     Route: 026

REACTIONS (9)
  - Infarction [Unknown]
  - Corneal oedema [Recovering/Resolving]
  - Keratitis [Unknown]
  - Atrophy of globe [Unknown]
  - Hyphaema [Unknown]
  - Eyelid ptosis [Recovering/Resolving]
  - Cataract [Unknown]
  - Blindness [Not Recovered/Not Resolved]
  - Ophthalmoplegia [Not Recovered/Not Resolved]
